FAERS Safety Report 9408879 (Version 1)
Quarter: 2013Q3

REPORT INFORMATION
  Report Type: Report from Study
  Country: GB (occurrence: GB)
  Receive Date: 20130719
  Receipt Date: 20130719
  Transmission Date: 20140515
  Serious: Yes (Hospitalization)
  Sender: FDA-Public Use
  Company Number: GB-ROCHE-1249994

PATIENT
  Sex: Male
  Weight: 200 kg

DRUGS (2)
  1. RITUXIMAB [Suspect]
     Indication: RHEUMATOID ARTHRITIS
     Dosage: DATE OF LAST DOSE PRIOR TO SERIOUS ADVERSE EVENT 25/APR/2012.
     Route: 065
     Dates: start: 20080521
  2. LEFLUNOMIDE [Concomitant]
     Indication: DIARRHOEA
     Route: 065
     Dates: start: 20111015

REACTIONS (2)
  - Change of bowel habit [Unknown]
  - Gastrointestinal disorder [Unknown]
